FAERS Safety Report 13126365 (Version 1)
Quarter: 2017Q1

REPORT INFORMATION
  Report Type: Spontaneous
  Country: DE (occurrence: DE)
  Receive Date: 20170118
  Receipt Date: 20170118
  Transmission Date: 20170428
  Serious: Yes (Hospitalization, Other)
  Sender: FDA-Public Use
  Company Number: PHHY2017DE005442

PATIENT
  Sex: Female

DRUGS (1)
  1. LETROZOLE. [Suspect]
     Active Substance: LETROZOLE
     Indication: BREAST CANCER
     Dosage: 2.5 MG, QD
     Route: 065
     Dates: start: 201606

REACTIONS (13)
  - Ilium fracture [Unknown]
  - Pathological fracture [Not Recovered/Not Resolved]
  - Microcytic anaemia [Unknown]
  - Osteolysis [Unknown]
  - Pituitary tumour benign [Unknown]
  - Drug intolerance [Unknown]
  - General physical health deterioration [Unknown]
  - Leukopenia [Unknown]
  - Spinal pain [Unknown]
  - Musculoskeletal pain [Unknown]
  - Pain [Unknown]
  - Sciatica [Unknown]
  - Metastases to liver [Unknown]

NARRATIVE: CASE EVENT DATE: 20160729
